FAERS Safety Report 13196634 (Version 1)
Quarter: 2017Q1

REPORT INFORMATION
  Report Type: Spontaneous
  Country: CN (occurrence: CN)
  Receive Date: 20170208
  Receipt Date: 20170208
  Transmission Date: 20170428
  Serious: Yes (Other)
  Sender: FDA-Public Use
  Company Number: CN-PFIZER INC-2017054852

PATIENT
  Age: 22 Year
  Sex: Male
  Weight: 67 kg

DRUGS (2)
  1. ZOLOFT [Suspect]
     Active Substance: SERTRALINE HYDROCHLORIDE
     Indication: SCHIZOPHRENIA
     Dosage: 50 MG, 1X/DAY
     Route: 048
     Dates: start: 20160101, end: 20160628
  2. TIAPRIDE [Suspect]
     Active Substance: TIAPRIDE
     Indication: SCHIZOPHRENIA
     Dosage: 0.1 G, 1X/DAY
     Route: 048
     Dates: start: 20160101, end: 20160628

REACTIONS (2)
  - Neuropathy peripheral [Recovering/Resolving]
  - Peripheral paralysis [Recovering/Resolving]

NARRATIVE: CASE EVENT DATE: 20160628
